FAERS Safety Report 16667581 (Version 1)
Quarter: 2019Q3

REPORT INFORMATION
  Report Type: Report from Study
  Country: US (occurrence: US)
  Receive Date: 20190805
  Receipt Date: 20190805
  Transmission Date: 20191004
  Serious: Yes (Other)
  Sender: FDA-Public Use
  Company Number: US-TAKEDA-2019TUS017510

PATIENT
  Sex: Female

DRUGS (1)
  1. BRIGATINIB [Suspect]
     Active Substance: BRIGATINIB
     Indication: ADRENAL GLAND CANCER
     Dosage: 60 MILLIGRAM, QD
     Route: 048
     Dates: start: 201903, end: 20190718

REACTIONS (3)
  - Adrenal gland cancer [Unknown]
  - Drug ineffective [Unknown]
  - Off label use [Unknown]
